FAERS Safety Report 9889252 (Version 1)
Quarter: 2014Q1

REPORT INFORMATION
  Report Type: Spontaneous
  Country: GB (occurrence: GB)
  Receive Date: 20140211
  Receipt Date: 20140211
  Transmission Date: 20141002
  Serious: Yes (Other)
  Sender: FDA-Public Use
  Company Number: GB-TEVA-459766ISR

PATIENT
  Age: 61 Year
  Sex: Female

DRUGS (2)
  1. CITALOPRAM [Suspect]
     Indication: PRODUCT USED FOR UNKNOWN INDICATION
     Route: 065
  2. IMOVANE [Suspect]
     Indication: INSOMNIA
     Dosage: 3.75 MILLIGRAM DAILY;
     Route: 065
     Dates: start: 201303

REACTIONS (20)
  - Dependence [Not Recovered/Not Resolved]
  - Social problem [Unknown]
  - Burning sensation [Unknown]
  - Pharyngeal oedema [Unknown]
  - Dysphagia [Unknown]
  - Dry throat [Unknown]
  - Cyst [Unknown]
  - Oropharyngeal pain [Unknown]
  - Glossodynia [Unknown]
  - Muscle twitching [Unknown]
  - Hyperhidrosis [Unknown]
  - Paraesthesia [Unknown]
  - Decreased appetite [Unknown]
  - Weight decreased [Unknown]
  - Tongue pruritus [Unknown]
  - Rash [Unknown]
  - Anxiety [Unknown]
  - Dizziness [Unknown]
  - Pruritus [Unknown]
  - Drug ineffective [Unknown]
